FAERS Safety Report 7364753-5 (Version None)
Quarter: 2011Q1

REPORT INFORMATION
  Report Type: 
  Country: None (occurrence: None)
  Receive Date: 20110321
  Receipt Date: 20110315
  Transmission Date: 20110831
  Serious: Yes (Death, Other)
  Sender: FDA-Public Use
  Company Number: US-AMGEN-USASP2011012448

PATIENT
  Age: 80 Year
  Sex: Male

DRUGS (4)
  1. CORTICOSTEROIDS [Concomitant]
  2. NPLATE [Suspect]
     Indication: IDIOPATHIC THROMBOCYTOPENIC PURPURA
     Dosage: 2 A?G/KG, UNK
     Dates: start: 20090909, end: 20090916
  3. IVIGLOB-EX [Concomitant]
  4. NPLATE [Suspect]
     Dates: start: 20090909

REACTIONS (3)
  - ACCIDENT AT HOME [None]
  - THERMAL BURN [None]
  - PRIMARY MEDIASTINAL LARGE B-CELL LYMPHOMA [None]
